FAERS Safety Report 7576729-3 (Version None)
Quarter: 2011Q2

REPORT INFORMATION
  Report Type: 
  Country: None (occurrence: None)
  Receive Date: 20110628
  Receipt Date: 20110523
  Transmission Date: 20111010
  Serious: Yes (Hospitalization)
  Sender: FDA-Public Use
  Company Number: US-BAYER-201041951NA

PATIENT
  Age: 41 Year
  Sex: Female
  Weight: 74.83 kg

DRUGS (10)
  1. YAZ [Suspect]
     Indication: ACNE
     Route: 048
     Dates: start: 20060601, end: 20100301
  2. NEURONTIN [Concomitant]
     Indication: DEPRESSION
     Dosage: 300 MG, TID
     Route: 048
  3. YASMIN [Suspect]
     Dosage: UNK
     Route: 048
     Dates: start: 20060601, end: 20100301
  4. MORPHINE SULFATE [Concomitant]
     Dosage: 15 MG, UNK
     Route: 048
  5. PROZAC [Concomitant]
     Dosage: 40 MG, QD
  6. BENADRYL [Concomitant]
     Indication: INSOMNIA
     Dosage: 25 MG, HS, PRN
  7. TRAZODONE HCL [Concomitant]
     Dosage: 200 MG, HS
     Route: 048
  8. YAZ [Suspect]
     Indication: PREMENSTRUAL SYNDROME
  9. PROZAC [Concomitant]
     Indication: DEPRESSION
     Dosage: 60 MG, QD
     Route: 048
  10. SOMA [Concomitant]
     Indication: MUSCLE SPASMS
     Dosage: 350 MG, TID, PRN
     Route: 048

REACTIONS (3)
  - CHOLECYSTITIS ACUTE [None]
  - CHOLELITHIASIS [None]
  - CHOLECYSTITIS CHRONIC [None]
